FAERS Safety Report 9032755 (Version 1)
Quarter: 2013Q1

REPORT INFORMATION
  Report Type: Spontaneous
  Country: US (occurrence: None)
  Receive Date: 20130110
  Receipt Date: 20130110
  Transmission Date: 20140127
  Serious: Yes (Hospitalization, Disabling)
  Sender: FDA-Public Use
  Company Number: 1552368

PATIENT
  Age: 11 Year
  Sex: Male

DRUGS (3)
  1. BUPIVACAIN HCL 0.25% + EPI 1:200,000 INJ, TEARTOP VIALS (BUPIVACAIN HYDROCHLORIDE) [Suspect]
     Indication: EPIDURAL ANAESTHESIA
  2. LIDOCAINE HCL 1.5 % + EPI 1 :200,000INJ, USP, FT VIAL (LIDOCAINE HYDROCHLORIDE [Suspect]
     Indication: EPIDURAL ANAESTHESIA
  3. (BUPIVACAINE HYDROCHLORIDE) [Suspect]
     Indication: EPIDURAL ANAESTHESIA

REACTIONS (10)
  - Brown-Sequard syndrome [None]
  - Unresponsive to stimuli [None]
  - Apnoea [None]
  - Hypotension [None]
  - Spinal cord injury [None]
  - Paraesthesia [None]
  - Spinal cord infarction [None]
  - Neurotoxicity [None]
  - Device deployment issue [None]
  - Incorrect route of drug administration [None]
